FAERS Safety Report 7782907-0 (Version None)
Quarter: 2011Q3

REPORT INFORMATION
  Report Type: 
  Country: None (occurrence: None)
  Receive Date: 20110928
  Receipt Date: 20110915
  Transmission Date: 20111222
  Serious: Yes (Hospitalization)
  Sender: FDA-Public Use
  Company Number: CA-ELI_LILLY_AND_COMPANY-CA201108002914

PATIENT
  Sex: Female

DRUGS (9)
  1. FORTEO [Suspect]
     Indication: OSTEOPOROSIS
     Dosage: 20 UG, QD
     Route: 058
     Dates: start: 20100111
  2. GABAPENTIN [Concomitant]
  3. CALCIUM CARBONATE [Concomitant]
  4. CITALOPRAM [Concomitant]
  5. CELEXA [Concomitant]
  6. DILAUDID [Concomitant]
  7. OMEPRAZOLE [Concomitant]
  8. PANTOLOC                           /01263202/ [Concomitant]
  9. VITAMIN D [Concomitant]

REACTIONS (3)
  - PERIPHERAL ARTERIAL OCCLUSIVE DISEASE [None]
  - ARTERIAL OCCLUSIVE DISEASE [None]
  - AMPUTATION [None]
